FAERS Safety Report 24594871 (Version 2)
Quarter: 2024Q4

REPORT INFORMATION
  Report Type: Spontaneous
  Country: JP (occurrence: JP)
  Receive Date: 20241108
  Receipt Date: 20241209
  Transmission Date: 20250114
  Serious: Yes (Other)
  Sender: ALEXION PHARMACEUTICALS
  Company Number: JP-ASTRAZENECA-240119032_013120_P_1

PATIENT
  Age: 78 Year

DRUGS (12)
  1. DURVALUMAB [Suspect]
     Active Substance: DURVALUMAB
     Indication: Bile duct cancer
     Dosage: 1500 MILLIGRAM, Q3W
  2. DURVALUMAB [Suspect]
     Active Substance: DURVALUMAB
     Dosage: 1500 MILLIGRAM, Q3W
     Route: 041
  3. DURVALUMAB [Suspect]
     Active Substance: DURVALUMAB
     Dosage: 1500 MILLIGRAM, Q3W
  4. DURVALUMAB [Suspect]
     Active Substance: DURVALUMAB
     Dosage: 1500 MILLIGRAM, Q3W
     Route: 041
  5. GEMCITABINE [Suspect]
     Active Substance: GEMCITABINE
     Indication: Bile duct cancer
     Dosage: DOSE UNKNOWN
  6. GEMCITABINE [Suspect]
     Active Substance: GEMCITABINE
     Dosage: DOSE UNKNOWN
     Route: 041
  7. GEMCITABINE [Suspect]
     Active Substance: GEMCITABINE
     Dosage: DOSE UNKNOWN
  8. GEMCITABINE [Suspect]
     Active Substance: GEMCITABINE
     Dosage: DOSE UNKNOWN
     Route: 041
  9. CISPLATIN [Suspect]
     Active Substance: CISPLATIN
     Indication: Bile duct cancer
     Dosage: DOSE UNKNOWN
  10. CISPLATIN [Suspect]
     Active Substance: CISPLATIN
     Dosage: DOSE UNKNOWN
     Route: 041
  11. CISPLATIN [Suspect]
     Active Substance: CISPLATIN
     Dosage: DOSE UNKNOWN
  12. CISPLATIN [Suspect]
     Active Substance: CISPLATIN
     Dosage: DOSE UNKNOWN
     Route: 041

REACTIONS (1)
  - Cytopenia [Unknown]
